FAERS Safety Report 8554136-4 (Version None)
Quarter: 2012Q3

REPORT INFORMATION
  Report Type: 
  Country: None (occurrence: None)
  Receive Date: 20120731
  Receipt Date: 20120727
  Transmission Date: 20120928
  Serious: Yes (Hospitalization)
  Sender: FDA-Public Use
  Company Number: PHEH2012US014820

PATIENT
  Sex: Female
  Weight: 87.982 kg

DRUGS (2)
  1. GILENYA [Suspect]
     Indication: MULTIPLE SCLEROSIS
     Dosage: 0.5 MG, QD
     Route: 048
     Dates: start: 20120619
  2. NUEDEXTA [Interacting]

REACTIONS (5)
  - CHEST DISCOMFORT [None]
  - FATIGUE [None]
  - DRUG INTERACTION [None]
  - DYSPNOEA [None]
  - BACK PAIN [None]
